FAERS Safety Report 7741291-9 (Version None)
Quarter: 2011Q3

REPORT INFORMATION
  Report Type: 
  Country: None (occurrence: None)
  Receive Date: 20110909
  Receipt Date: 20110828
  Transmission Date: 20111222
  Serious: Yes (Hospitalization, Other)
  Sender: FDA-Public Use
  Company Number: US-ELI_LILLY_AND_COMPANY-US201108008967

PATIENT
  Sex: Male

DRUGS (10)
  1. PANTOPRAZOLE [Concomitant]
     Dosage: UNK
  2. LASIX [Concomitant]
     Dosage: UNK
     Dates: end: 20090101
  3. HUMALOG [Suspect]
     Indication: PANCREATIC DISORDER
     Dosage: UNK UNK, PRN
     Dates: start: 20080101
  4. AMLODIPINE [Concomitant]
     Indication: BLOOD PRESSURE
     Dosage: UNK
     Dates: start: 20090101
  5. PREDNISOLONE [Concomitant]
     Dosage: UNK
  6. BUMETANIDE [Concomitant]
     Dosage: UNK
     Dates: start: 20090101
  7. SODIUM BICARBONATE [Concomitant]
     Dosage: UNK
  8. LISINOPRIL [Concomitant]
     Indication: BLOOD PRESSURE
     Dosage: UNK
     Dates: end: 20090101
  9. ALLOPURINOL [Concomitant]
     Dosage: UNK
  10. HUMALOG MIX 75/25 [Suspect]
     Indication: PANCREATIC DISORDER
     Dosage: UNK UNK, PRN
     Dates: start: 20080101

REACTIONS (4)
  - RENAL FAILURE [None]
  - GOUT [None]
  - ANAESTHETIC COMPLICATION [None]
  - BLOOD GLUCOSE INCREASED [None]
